FAERS Safety Report 15645109 (Version 4)
Quarter: 2022Q2

REPORT INFORMATION
  Report Type: Spontaneous
  Country: US (occurrence: US)
  Receive Date: 20181121
  Receipt Date: 20220525
  Transmission Date: 20220720
  Serious: Yes (Hospitalization)
  Sender: FDA-Public Use
  Company Number: US-PFIZER INC-2018472299

PATIENT
  Age: 59 Year
  Sex: Female
  Weight: 81.633 kg

DRUGS (3)
  1. XELJANZ XR [Interacting]
     Active Substance: TOFACITINIB CITRATE
     Indication: Rheumatoid arthritis
     Dosage: UNK
  2. XELJANZ XR [Interacting]
     Active Substance: TOFACITINIB CITRATE
     Dosage: 11 MG, 1X/DAY
     Route: 048
  3. CANNABIDIOL [Interacting]
     Active Substance: CANNABIDIOL
     Indication: Supplementation therapy
     Dosage: 0.25 ML, 1X/DAY (1 OUNCE)
     Route: 048
     Dates: start: 2018

REACTIONS (7)
  - Illness [Unknown]
  - Arthritis [Unknown]
  - Insomnia [Unknown]
  - Sensitivity to weather change [Unknown]
  - Drug interaction [Unknown]
  - Insomnia [Unknown]
  - Confusional state [Unknown]

NARRATIVE: CASE EVENT DATE: 20181113
